FAERS Safety Report 12762813 (Version 2)
Quarter: 2017Q1

REPORT INFORMATION
  Report Type: Spontaneous
  Country: AU (occurrence: FR)
  Receive Date: 20160920
  Receipt Date: 20170224
  Transmission Date: 20170428
  Serious: Yes (Hospitalization, Other)
  Sender: FDA-Public Use
  Company Number: AU-PFIZER INC-2016430083

PATIENT
  Age: 69 Year
  Sex: Female

DRUGS (8)
  1. SERTRALINE HCL [Concomitant]
     Active Substance: SERTRALINE HYDROCHLORIDE
     Dosage: 50 MG, UNK
  2. ATACAND [Concomitant]
     Active Substance: CANDESARTAN CILEXETIL
     Dosage: 16 MG, UNK
     Dates: start: 2010
  3. XELJANZ [Suspect]
     Active Substance: TOFACITINIB CITRATE
     Indication: RHEUMATOID ARTHRITIS
     Dosage: 5 MG, 2X/DAY
     Dates: start: 20150901
  4. SOMAC [Concomitant]
     Active Substance: PANTOPRAZOLE SODIUM
     Dosage: UNK
     Dates: start: 1996
  5. VITAMIN D3 [Concomitant]
     Active Substance: CHOLECALCIFEROL
     Dosage: UNK
  6. PREDNISOLONE. [Concomitant]
     Active Substance: PREDNISOLONE
     Dosage: 5 MG, UNK
     Dates: start: 1996
  7. GENTEAL /00445101/ [Concomitant]
     Active Substance: HYPROMELLOSE 2910 (4000 MPA.S)
     Dosage: UNK
  8. NASONEX [Concomitant]
     Active Substance: MOMETASONE FUROATE
     Dosage: UNK, SPRAY

REACTIONS (3)
  - Fall [Recovering/Resolving]
  - Joint injury [Recovering/Resolving]
  - Ligament rupture [Recovered/Resolved]

NARRATIVE: CASE EVENT DATE: 20160831
